FAERS Safety Report 10052190 (Version 1)
Quarter: 2014Q2

REPORT INFORMATION
  Report Type: Spontaneous
  Country: US (occurrence: None)
  Receive Date: 20140401
  Receipt Date: 20140401
  Transmission Date: 20141212
  Serious: Yes (Other)
  Sender: FDA-Public Use
  Company Number: None

PATIENT
  Age: 23 Year
  Sex: 0
  Weight: 61.24 kg

DRUGS (5)
  1. MONTELUKAST [Suspect]
     Indication: ASTHMA
     Dosage: ONE TABLET QD ORAL
     Route: 048
     Dates: start: 20120702, end: 20140228
  2. MONTELUKAST [Suspect]
     Indication: RHINITIS ALLERGIC
     Dosage: ONE TABLET QD ORAL
     Route: 048
     Dates: start: 20120702, end: 20140228
  3. BUPROPION ZL [Concomitant]
  4. ALBUTEROL [Concomitant]
  5. CO-Q-10 [Concomitant]

REACTIONS (16)
  - Tic [None]
  - Blood pressure increased [None]
  - Disturbance in attention [None]
  - Headache [None]
  - Abdominal pain [None]
  - Pruritus [None]
  - Rhinorrhoea [None]
  - Oropharyngeal pain [None]
  - Fatigue [None]
  - Insomnia [None]
  - Amnesia [None]
  - Hot flush [None]
  - Condition aggravated [None]
  - Obsessive thoughts [None]
  - Judgement impaired [None]
  - Anxiety [None]
